FAERS Safety Report 8344530 (Version 2)
Quarter: 2013Q3

REPORT INFORMATION
  Report Type: Report from Study
  Country: BR (occurrence: BR)
  Receive Date: 20120119
  Receipt Date: 20130702
  Transmission Date: 20140515
  Serious: Yes (Life-Threatening, Hospitalization, Other)
  Sender: FDA-Public Use
  Company Number: BR-ROCHE-666709

PATIENT
  Age: 63 Year
  Sex: Female
  Weight: 60 kg

DRUGS (26)
  1. RITUXIMAB [Suspect]
     Indication: RHEUMATOID ARTHRITIS
     Dosage: DOSE: 100 MG/10 ML; FREQUENCY: 1000 MG/KG; OTHER INDICATION: VASCULITIS, FORM: INFUSION
     Route: 042
     Dates: start: 20090601, end: 201203
  2. RITUXIMAB [Suspect]
     Dosage: DOSE: 100 MG/10 ML
     Route: 042
     Dates: start: 200907, end: 20100204
  3. RITUXIMAB [Suspect]
     Route: 042
     Dates: start: 20110107, end: 201101
  4. RITUXIMAB [Suspect]
     Route: 042
  5. PREDNISONE [Suspect]
     Indication: RHEUMATOID ARTHRITIS
     Route: 065
  6. ARAVA [Concomitant]
     Route: 065
  7. METHOTREXATE [Concomitant]
  8. INSULIN [Concomitant]
     Dosage: UNSPECIFIED/IN THE MORNING
     Route: 065
  9. HUMALOG [Concomitant]
     Dosage: FREQUENCY: 30 UI IN THE MORNING AND 20 UI AT NIGHT
     Route: 065
  10. ORENCIA [Concomitant]
     Indication: RHEUMATOID ARTHRITIS
  11. ENALAPRIL [Concomitant]
     Route: 065
  12. SYNTHROID [Concomitant]
     Route: 065
  13. NEXIUM [Concomitant]
     Route: 065
  14. SELOZOK [Concomitant]
     Route: 065
  15. ALDACTONE [Concomitant]
     Route: 065
  16. PLAVIX [Concomitant]
     Indication: CARDIAC DISORDER
     Dosage: DOSE: 10 MG/75 MG
     Route: 065
  17. CYMBALTA [Concomitant]
     Route: 065
  18. METICORTEN [Concomitant]
     Route: 065
  19. DIGOXIN [Concomitant]
     Route: 065
  20. AAS [Concomitant]
     Route: 065
  21. GALVUS [Concomitant]
     Dosage: DRUG REPORTED AS GALVUS MET
     Route: 065
  22. FERROUS SULFATE [Concomitant]
     Route: 065
  23. B COMPLEX [Concomitant]
     Route: 065
  24. LIPITOR [Concomitant]
     Route: 065
  25. ZETIA [Concomitant]
     Dosage: FREQUENCY: ONE CAPSULE
     Route: 065
  26. NORVASC [Concomitant]
     Route: 065

REACTIONS (22)
  - Syncope [Unknown]
  - VIIth nerve paralysis [Recovered/Resolved]
  - Immunodeficiency [Not Recovered/Not Resolved]
  - Herpes zoster [Not Recovered/Not Resolved]
  - Myocardial infarction [Recovered/Resolved]
  - Cardiac aneurysm [Recovered/Resolved]
  - Haemorrhage [Unknown]
  - Heart disease congenital [Unknown]
  - Bone disorder [Unknown]
  - Arthropathy [Unknown]
  - Gait disturbance [Unknown]
  - Pain [Unknown]
  - Pneumothorax [Not Recovered/Not Resolved]
  - Back pain [Not Recovered/Not Resolved]
  - Weight decreased [Recovering/Resolving]
  - Pain in extremity [Unknown]
  - Blood cholesterol abnormal [Unknown]
  - Hypersensitivity [Unknown]
  - Anaemia [Unknown]
  - Arthralgia [Not Recovered/Not Resolved]
  - Pain in extremity [Not Recovered/Not Resolved]
  - Infusion related reaction [Recovered/Resolved]
